FAERS Safety Report 11006049 (Version 2)
Quarter: 2015Q2

REPORT INFORMATION
  Report Type: Report from Study
  Country: CA (occurrence: CA)
  Receive Date: 20150409
  Receipt Date: 20150413
  Transmission Date: 20150821
  Serious: Yes (Death, Hospitalization, Other)
  Sender: FDA-Public Use
  Company Number: PHHY2013CA007585

PATIENT
  Age: 57 Year
  Sex: Male

DRUGS (4)
  1. SANDOSTATIN LAR DEPOT [Suspect]
     Active Substance: OCTREOTIDE ACETATE
     Indication: NEUROENDOCRINE TUMOUR
     Dosage: 30 MG, EVERY 4 WEEKS
     Route: 030
     Dates: start: 20121220
  2. SANDOSTATIN LAR DEPOT [Suspect]
     Active Substance: OCTREOTIDE ACETATE
     Dosage: 30 MG, EVERY 4 WEEKS
     Route: 030
  3. SANDOSTATIN LAR DEPOT [Suspect]
     Active Substance: OCTREOTIDE ACETATE
     Dosage: 40 MG, EVERY 4 WEEKS
     Route: 030
  4. SANDOSTATIN LAR DEPOT [Suspect]
     Active Substance: OCTREOTIDE ACETATE
     Dosage: 20 MG (ONE DOSE OF 20 MG IN THE RIGHT SIDE) OF THE 40 MG
     Route: 030

REACTIONS (20)
  - Blood pressure decreased [Unknown]
  - Secretion discharge [Recovered/Resolved]
  - Body temperature increased [Recovered/Resolved]
  - Testicular pain [Unknown]
  - Constipation [Unknown]
  - Lipase increased [Unknown]
  - Hypoaesthesia [Unknown]
  - Weight increased [Unknown]
  - Death [Fatal]
  - Terminal state [Unknown]
  - Weight decreased [Unknown]
  - Abdominal pain [Recovered/Resolved]
  - Ascites [Unknown]
  - Hepatic pain [Unknown]
  - Asthenia [Unknown]
  - Oedema [Recovering/Resolving]
  - Feeling cold [Unknown]
  - Blood pressure increased [Unknown]
  - Underdose [Unknown]
  - Pancreatitis [Unknown]

NARRATIVE: CASE EVENT DATE: 2014
